FAERS Safety Report 5294029-1 (Version None)
Quarter: 2007Q2

REPORT INFORMATION
  Report Type: 
  Country: None (occurrence: None)
  Receive Date: 20070405
  Receipt Date: 20070402
  Transmission Date: 20071010
  Serious: Yes (Other)
  Sender: FDA-Public Use
  Company Number: 012207

PATIENT
  Age: 63 Year
  Sex: Female

DRUGS (2)
  1. MEDROXYPROGESTERONE ACETATE [Suspect]
     Dosage: UNK, UNK, ORAL
     Route: 048
     Dates: start: 19930701, end: 20020701
  2. PREMARIN [Suspect]
     Dosage: UNK, UNK, ORAL
     Route: 048
     Dates: start: 19920501, end: 20020701

REACTIONS (1)
  - BREAST CANCER FEMALE [None]
